FAERS Safety Report 24670146 (Version 1)
Quarter: 2024Q4

REPORT INFORMATION
  Report Type: Spontaneous
  Country: CN (occurrence: CN)
  Receive Date: 20241127
  Receipt Date: 20241127
  Transmission Date: 20250114
  Serious: Yes (Life-Threatening, Other)
  Sender: BAYER HEALTHCARE PHARMACEUTICALS INC.
  Company Number: CN-BAYER-2024A168347

PATIENT
  Age: 44 Year
  Sex: Female
  Weight: 54 kg

DRUGS (2)
  1. ULTRAVIST [Suspect]
     Active Substance: IOPROMIDE
     Indication: Computerised tomogram abdomen
     Dosage: 80 ML, ONCE
     Route: 042
     Dates: start: 20241110, end: 20241110
  2. ULTRAVIST [Suspect]
     Active Substance: IOPROMIDE
     Indication: Carbohydrate antigen 19-9 increased

REACTIONS (8)
  - Contrast media allergy [Recovered/Resolved]
  - Vomiting [Recovered/Resolved]
  - Eyelid oedema [Recovered/Resolved]
  - Circumoral oedema [Recovered/Resolved]
  - Hypotension [Recovered/Resolved]
  - Erythema of eyelid [Recovered/Resolved]
  - Lip erythema [Recovered/Resolved]
  - Lip swelling [Recovered/Resolved]

NARRATIVE: CASE EVENT DATE: 20241110
